FAERS Safety Report 24382263 (Version 1)
Quarter: 2024Q4

REPORT INFORMATION
  Report Type: Spontaneous
  Country: DK (occurrence: DK)
  Receive Date: 20241001
  Receipt Date: 20241001
  Transmission Date: 20250115
  Serious: Yes (Disabling, Other)
  Sender: CELLTRION
  Company Number: DK-JNJFOC-20240367433

PATIENT

DRUGS (4)
  1. RITUXIMAB [Suspect]
     Active Substance: RITUXIMAB
     Indication: Product used for unknown indication
     Dosage: UNK
     Route: 065
     Dates: start: 20210504, end: 20220316
  2. IBRUTINIB [Suspect]
     Active Substance: IBRUTINIB
     Indication: Mantle cell lymphoma
     Dosage: 280 MG, QD
     Route: 048
  3. IBRUTINIB [Suspect]
     Active Substance: IBRUTINIB
     Dosage: 560 MG, QD
     Route: 048
     Dates: start: 20210504, end: 20220316
  4. IBRUTINIB [Suspect]
     Active Substance: IBRUTINIB
     Dosage: 420 MG
     Route: 048
     Dates: start: 20210824

REACTIONS (3)
  - Paraparesis [Not Recovered/Not Resolved]
  - Balance disorder [Not Recovered/Not Resolved]
  - Neuropathy peripheral [Not Recovered/Not Resolved]

NARRATIVE: CASE EVENT DATE: 20210719
